FAERS Safety Report 22075533 (Version 1)
Quarter: 2023Q1

REPORT INFORMATION
  Report Type: Spontaneous
  Country: US (occurrence: US)
  Receive Date: 20230308
  Receipt Date: 20230308
  Transmission Date: 20230418
  Serious: No
  Sender: FDA-Public Use
  Company Number: US-BRISTOL-MYERS SQUIBB COMPANY-2023-033826

PATIENT
  Age: 80 Year
  Sex: Female
  Weight: 56.69 kg

DRUGS (1)
  1. POMALYST [Suspect]
     Active Substance: POMALIDOMIDE
     Indication: Plasma cell myeloma
     Dosage: FREQ -21D OF 28D CYCLE
     Route: 048
     Dates: start: 20220601

REACTIONS (1)
  - Blood viscosity increased [Unknown]
